FAERS Safety Report 5036975-X (Version None)
Quarter: 2006Q2

REPORT INFORMATION
  Report Type: 
  Country: None (occurrence: None)
  Receive Date: 20060623
  Receipt Date: 20060612
  Transmission Date: 20061013
  Serious: Yes (Hospitalization)
  Sender: FDA-Public Use
  Company Number: 2006066414

PATIENT
  Age: 74 Year
  Sex: Female
  Weight: 67 kg

DRUGS (4)
  1. SUTENT [Suspect]
     Indication: RENAL CELL CARCINOMA STAGE UNSPECIFIED
     Dosage: 50 MG, 1/DAY, ORAL
     Route: 048
     Dates: start: 20060501, end: 20060516
  2. ALLOPURINOL [Concomitant]
  3. PHYSIOTENS (MOXONIDINE) [Concomitant]
  4. COKENZEN (CANDESARTAN CILEXETIL, HYDROCHLOROTHIAZIDE) [Concomitant]

REACTIONS (1)
  - ORTHOSTATIC HYPOTENSION [None]
